FAERS Safety Report 9720204 (Version 2)
Quarter: 2013Q4

REPORT INFORMATION
  Report Type: Spontaneous
  Country: JP (occurrence: JP)
  Receive Date: 20131129
  Receipt Date: 20131226
  Transmission Date: 20140711
  Serious: Yes (Hospitalization)
  Sender: FDA-Public Use
  Company Number: JP-AMGEN-JPNSP2013084145

PATIENT
  Age: 79 Year
  Sex: Male
  Weight: 56 kg

DRUGS (10)
  1. RANMARK [Suspect]
     Indication: METASTASES TO BONE
     Dosage: 120 MG, UNK
     Route: 058
     Dates: start: 20131001, end: 20131001
  2. RANMARK [Suspect]
     Indication: NON-SMALL CELL LUNG CANCER
  3. ALIMTA [Suspect]
     Indication: NON-SMALL CELL LUNG CANCER
     Route: 042
     Dates: start: 20131001, end: 20131001
  4. MEDICON                            /00048102/ [Concomitant]
     Route: 048
     Dates: start: 20130328
  5. CISDYNE [Concomitant]
     Route: 048
     Dates: start: 20130318
  6. SYMBICORT [Concomitant]
     Dosage: UNKNOWN
     Route: 055
     Dates: start: 20130322
  7. MOHRUS [Concomitant]
     Dosage: UNKNOWN
     Route: 050
     Dates: start: 20130917
  8. ASPARA-CA [Concomitant]
     Route: 048
     Dates: start: 20131001
  9. TOYOFAROL [Concomitant]
     Route: 048
     Dates: start: 20131001
  10. CALONAL [Concomitant]
     Route: 048
     Dates: start: 20130917

REACTIONS (1)
  - Interstitial lung disease [Recovering/Resolving]
